FAERS Safety Report 5484363-4 (Version None)
Quarter: 2007Q4

REPORT INFORMATION
  Report Type: 
  Country: None (occurrence: None)
  Receive Date: 20071010
  Receipt Date: 20071001
  Transmission Date: 20080405
  Serious: Yes (Hospitalization)
  Sender: FDA-Public Use
  Company Number: ABNYS-07-0852

PATIENT
  Age: 65 Year
  Sex: Female
  Weight: 49.9 kg

DRUGS (1)
  1. ABRAXANE [Suspect]
     Indication: BREAST CANCER METASTATIC
     Dosage: LAST DOSE PRIOR TO EVENT ONSET WAS ON 26-SEP-07 (4TH DOSE). (Q 3 WEEKS, REST, THEN REPEAT), INTRAVEN
     Route: 042
     Dates: start: 20070829

REACTIONS (5)
  - DIARRHOEA [None]
  - GASTROINTESTINAL DISORDER [None]
  - HAEMATEMESIS [None]
  - REFUSAL OF TREATMENT BY PATIENT [None]
  - VOMITING [None]
